FAERS Safety Report 9527666 (Version 1)
Quarter: 2013Q1

REPORT INFORMATION
  Report Type: Spontaneous
  Country: US (occurrence: None)
  Receive Date: 20130314
  Receipt Date: 20130314
  Transmission Date: 20140127
  Serious: No
  Sender: FDA-Public Use
  Company Number: 1211USA006706

PATIENT
  Age: 26 Year
  Sex: Female

DRUGS (5)
  1. VICTRELIS (BOCEPREVIR) CAPSULE, 200MG [Suspect]
     Dosage: 800 MG, TID, ORAL
     Route: 048
  2. RIBAVIRIN (RIBAVIRIN) CAPSULE, 200MG [Suspect]
  3. PEGASYS (PEGINTERFERON ALFA-2A) INJECTION [Suspect]
     Dosage: 180MCG/M
  4. VITAMINS (UNSPECIFIED) (VITAMINS UNSPECIFIED) [Concomitant]
  5. NEUPOGEN (FILGRASTIM) [Concomitant]

REACTIONS (1)
  - White blood cell count decreased [None]
